FAERS Safety Report 21676867 (Version 12)
Quarter: 2023Q1

REPORT INFORMATION
  Report Type: Report from Study
  Country: SG (occurrence: SG)
  Receive Date: 20221203
  Receipt Date: 20230301
  Transmission Date: 20230417
  Serious: Yes (Death, Hospitalization)
  Sender: FDA-Public Use
  Company Number: SG-AMGEN-SGPCT2022209192

PATIENT
  Age: 11 Year
  Sex: Male

DRUGS (22)
  1. CARFILZOMIB [Suspect]
     Active Substance: CARFILZOMIB
     Indication: Acute lymphocytic leukaemia
     Dosage: 20 MILLIGRAM/SQ. METER
     Route: 040
     Dates: start: 20221130
  2. CARFILZOMIB [Suspect]
     Active Substance: CARFILZOMIB
     Dosage: 56 MILLIGRAM/SQ. METER (62 MILLIGRAM)
     Route: 040
     Dates: start: 20221201, end: 20221201
  3. DEXAMETHASONE [Suspect]
     Active Substance: DEXAMETHASONE
     Indication: Acute lymphocytic leukaemia
     Dosage: 3 MILLIGRAM
     Route: 040
     Dates: start: 20221129, end: 20221202
  4. DAUNORUBICIN [Concomitant]
     Active Substance: DAUNORUBICIN
     Indication: Acute lymphocytic leukaemia
     Dosage: 65 MILLIGRAM
     Dates: start: 20221201, end: 20221201
  5. METHOTREXATE [Concomitant]
     Active Substance: METHOTREXATE
     Indication: Acute lymphocytic leukaemia
     Dosage: 15 MILLIGRAM
     Route: 029
     Dates: start: 20221129
  6. VINCRISTINE [Concomitant]
     Active Substance: VINCRISTINE
     Dosage: 1.65 MILLIGRAM
     Dates: start: 20221130
  7. DEXTROSE AND SODIUM CHLORIDE [Concomitant]
     Active Substance: DEXTROSE MONOHYDRATE\SODIUM CHLORIDE
     Dosage: 83.33-166.7 MILLILITER
     Route: 042
     Dates: start: 20221128, end: 20221202
  8. CEFTRIAXONE [Concomitant]
     Active Substance: CEFTRIAXONE
     Dosage: 1.5 GRAM
     Route: 042
     Dates: start: 20221128, end: 20221201
  9. DIPHENHYDRAMINE HYDROCHLORIDE [Concomitant]
     Active Substance: DIPHENHYDRAMINE HYDROCHLORIDE
     Dosage: 25 MILLIGRAM
     Route: 042
     Dates: start: 20221128, end: 20221202
  10. ACETAMINOPHEN [Concomitant]
     Active Substance: ACETAMINOPHEN
     Dosage: 500 MILLIGRAM
     Route: 048
     Dates: start: 20221128, end: 20221201
  11. RASBURICASE [Concomitant]
     Active Substance: RASBURICASE
     Dosage: 1.5 MILLIGRAM
     Route: 042
     Dates: start: 20221129, end: 20221203
  12. ONDANSETRON [Concomitant]
     Active Substance: ONDANSETRON
     Dosage: 6 MILLIGRAM
     Route: 042
     Dates: start: 20221129, end: 20221202
  13. FAMOTIDINE [Concomitant]
     Active Substance: FAMOTIDINE
     Dosage: 20 MILLIGRAM
     Route: 048
     Dates: start: 20221128, end: 20221201
  14. MORPHINE SULFATE [Concomitant]
     Active Substance: MORPHINE SULFATE
     Dosage: 25 MILLIGRAM
     Route: 040
     Dates: start: 20221202, end: 20221203
  15. MICAFUNGIN [Concomitant]
     Active Substance: MICAFUNGIN
     Dosage: 130 MILLIGRAM
     Route: 040
     Dates: start: 20221202, end: 20221202
  16. PIPERACILLIN SODIUM\TAZOBACTAM SODIUM [Concomitant]
     Active Substance: PIPERACILLIN SODIUM\TAZOBACTAM SODIUM
     Dosage: 2.9 GRAM
     Route: 040
     Dates: start: 20221202, end: 20221202
  17. SEVELAMER CARBONATE [Concomitant]
     Active Substance: SEVELAMER CARBONATE
     Dosage: 800 MILLIGRAM
     Route: 048
     Dates: start: 20221128, end: 20221201
  18. CALCIUM CARBONATE [Concomitant]
     Active Substance: CALCIUM CARBONATE
     Dosage: 1250 MILLIGRAM
     Route: 048
     Dates: start: 20221128, end: 20221201
  19. KETAMINE [Concomitant]
     Active Substance: KETAMINE
     Dosage: 40 MILLIGRAM
     Route: 040
     Dates: start: 20221202, end: 20221202
  20. MIDAZOLAM [Concomitant]
     Active Substance: MIDAZOLAM
     Dosage: 200 MILLIGRAM
     Route: 040
     Dates: start: 20221202, end: 20221203
  21. ALBUTEROL [Concomitant]
     Active Substance: ALBUTEROL
     Dosage: UNK
     Route: 050
     Dates: start: 20221202, end: 20221202
  22. ROCURONIUM [Concomitant]
     Active Substance: ROCURONIUM BROMIDE
     Dosage: UNK
     Route: 040
     Dates: start: 20221202, end: 20221202

REACTIONS (1)
  - Pulmonary haemorrhage [Fatal]

NARRATIVE: CASE EVENT DATE: 20221203
